FAERS Safety Report 11107832 (Version 4)
Quarter: 2015Q2

REPORT INFORMATION
  Report Type: Report from Study
  Country: CA (occurrence: CA)
  Receive Date: 20150512
  Receipt Date: 20150616
  Transmission Date: 20150821
  Serious: Yes (Death, Hospitalization)
  Sender: FDA-Public Use
  Company Number: PHHY2015CA053522

PATIENT
  Age: 71 Year
  Sex: Female

DRUGS (3)
  1. BISOPROLOL [Concomitant]
     Active Substance: BISOPROLOL
     Indication: PRODUCT USED FOR UNKNOWN INDICATION
     Dosage: 10 MG, QD
     Route: 048
  2. SANDOSTATIN [Suspect]
     Active Substance: OCTREOTIDE ACETATE
     Indication: METASTASES TO PERITONEUM
     Dosage: 100 UG, TID (CONT. 2 WEEKS POST 1ST LAR)
     Route: 058
     Dates: start: 20150325, end: 201504
  3. SANDOSTATIN LAR DEPOT [Suspect]
     Active Substance: OCTREOTIDE ACETATE
     Indication: METASTASES TO PERITONEUM
     Dosage: 30 MG, EVERY 4 WEEKS
     Route: 030
     Dates: start: 20150331, end: 20150526

REACTIONS (11)
  - Death [Fatal]
  - Asthenia [Unknown]
  - Blood magnesium decreased [Unknown]
  - Malignant neoplasm progression [Unknown]
  - Metastases to kidney [Unknown]
  - Decreased appetite [Unknown]
  - Dehydration [Unknown]
  - Injection site erythema [Unknown]
  - General physical health deterioration [Unknown]
  - Nausea [Unknown]
  - Off label use [Unknown]

NARRATIVE: CASE EVENT DATE: 201504
